FAERS Safety Report 21823492 (Version 5)
Quarter: 2023Q2

REPORT INFORMATION
  Report Type: Report from Study
  Country: CN (occurrence: CN)
  Receive Date: 20230105
  Receipt Date: 20230607
  Transmission Date: 20230722
  Serious: Yes (Other)
  Sender: FDA-Public Use
  Company Number: CN-TAKEDA-2022TUS022589

PATIENT
  Age: 59 Year
  Sex: Female
  Weight: 62 kg

DRUGS (25)
  1. BRENTUXIMAB VEDOTIN [Suspect]
     Active Substance: BRENTUXIMAB VEDOTIN
     Indication: Angioimmunoblastic T-cell lymphoma
     Dosage: 100 MILLIGRAM, Q4WEEKS
     Route: 041
     Dates: start: 20220322
  2. BENDAMUSTINE HYDROCHLORIDE [Suspect]
     Active Substance: BENDAMUSTINE HYDROCHLORIDE
     Indication: Lymphoma
     Dosage: 120 MILLIGRAM, QD
     Route: 042
     Dates: start: 20220322, end: 20220324
  3. BENDAMUSTINE HYDROCHLORIDE [Suspect]
     Active Substance: BENDAMUSTINE HYDROCHLORIDE
     Dosage: 150 MILLIGRAM, QD
     Route: 042
     Dates: start: 20220617, end: 20220618
  4. LIDOCAINE HYDROCHLORIDE [Concomitant]
     Active Substance: LIDOCAINE HYDROCHLORIDE
     Indication: Anaesthesia
     Dosage: 5 MILLILITER, QD
     Route: 061
     Dates: start: 20220307, end: 20220307
  5. LIDOCAINE HYDROCHLORIDE [Concomitant]
     Active Substance: LIDOCAINE HYDROCHLORIDE
     Indication: Prophylaxis
     Dosage: 1 MILLILITER, QD
     Route: 061
     Dates: start: 20220307, end: 20220307
  6. GLUTATHIONE [Concomitant]
     Active Substance: GLUTATHIONE
     Indication: Liver injury
     Dosage: 400 MILLIGRAM, TID
     Route: 048
     Dates: start: 20220307
  7. PHOSPHOLIPID [Concomitant]
     Active Substance: PHOSPHOLIPID
     Indication: Liver injury
     Dosage: 228 MILLIGRAM, TID
     Route: 048
     Dates: start: 20220307
  8. PEGYLATED RECOMBINANT HUMAN GRANULOCYTE COLONY STIMULATING FACTOR [Concomitant]
     Indication: Myelosuppression
     Dosage: 3 MILLIGRAM, QD
     Route: 058
     Dates: start: 20220307, end: 20220307
  9. ZOLEDRONIC ACID [Concomitant]
     Active Substance: ZOLEDRONIC ACID
     Indication: Osteoporosis
     Dosage: 4 MILLIGRAM, QD
     Route: 042
     Dates: start: 20220307, end: 20220307
  10. LENTINAN [Concomitant]
     Active Substance: LENTINAN
     Indication: Prophylaxis
     Dosage: 1 MILLIGRAM, QD
     Route: 042
     Dates: start: 20220318, end: 20220324
  11. THROMBOPOIETIN [Concomitant]
     Active Substance: THROMBOPOIETIN
     Indication: Myelosuppression
     Dosage: 2 MILLILITER, QD
     Route: 058
     Dates: start: 20220320, end: 20220324
  12. GRANULOCYTE COLONY-STIMULATING FACTOR NOS [Concomitant]
     Active Substance: GRANULOCYTE COLONY-STIMULATING FACTOR NOS
     Indication: Myelosuppression
     Dosage: 200 MICROGRAM, QD
     Route: 058
     Dates: start: 20220320, end: 20220320
  13. METHYLPREDNISOLONE [Concomitant]
     Active Substance: METHYLPREDNISOLONE
     Indication: Hypersensitivity
     Dosage: 40 MILLIGRAM, QD
     Route: 042
     Dates: start: 20220322, end: 20220322
  14. METHYLPREDNISOLONE [Concomitant]
     Active Substance: METHYLPREDNISOLONE
     Indication: Chemotherapy
  15. PROMETHAZINE HYDROCHLORIDE [Concomitant]
     Active Substance: PROMETHAZINE HYDROCHLORIDE
     Indication: Chemotherapy
     Dosage: 25 MILLIGRAM, QD
     Route: 030
     Dates: start: 20220322, end: 20220322
  16. SODIUM ACETATE RINGER [Concomitant]
     Indication: Prophylaxis
     Dosage: 500 MILLILITER, QD
     Route: 042
     Dates: start: 20220322, end: 20220324
  17. RABEPRAZOLE SODIUM [Concomitant]
     Active Substance: RABEPRAZOLE SODIUM
     Indication: Prophylaxis
     Dosage: 20 MILLIGRAM, QD
     Route: 042
     Dates: start: 20220322, end: 20220324
  18. COMPOUND SODIUM CHLORIDE [CALCIUM CHLORIDE;POTASSIUM CHLORIDE;SODIUM C [Concomitant]
     Indication: Electrolyte substitution therapy
     Dosage: 500 MILLILITER, QD
     Route: 042
     Dates: start: 20220322, end: 20220322
  19. TORSEMIDE [Concomitant]
     Active Substance: TORSEMIDE
     Indication: Polyuria
     Dosage: 20 MILLIGRAM, QD
     Route: 042
     Dates: start: 20220322, end: 20220324
  20. DOLASETRON MESILATE [Concomitant]
     Indication: Vomiting
     Dosage: 100 MILLIGRAM, QD
     Route: 042
     Dates: start: 20220322, end: 20220324
  21. DEXAMETHASONE ACETATE [Concomitant]
     Active Substance: DEXAMETHASONE ACETATE
     Indication: Hypersensitivity
     Dosage: 2.5 MILLIGRAM, QD
     Route: 030
     Dates: start: 20220323, end: 20220324
  22. AMIFOSTINE [Concomitant]
     Active Substance: AMIFOSTINE
     Indication: Prophylaxis
     Dosage: 0.8 MILLIGRAM, QD
     Route: 042
     Dates: start: 20220323, end: 20220324
  23. MAGNESIUM SULFATE [Concomitant]
     Active Substance: MAGNESIUM SULFATE
     Dosage: 10 MILLILITER, QD
     Route: 042
     Dates: start: 20220322, end: 20220324
  24. MEGLUMINE [Concomitant]
     Active Substance: MEGLUMINE
     Indication: Vomiting
     Dosage: 150 MILLIGRAM, QD
     Route: 042
     Dates: start: 20220323, end: 20220323
  25. CALCIUM ASPARTATE [Concomitant]
     Active Substance: CALCIUM ASPARTATE
     Indication: Prophylaxis
     Dosage: 750 MILLIGRAM, QD
     Route: 042
     Dates: start: 20220322, end: 20220323

REACTIONS (15)
  - Drug-induced liver injury [Not Recovered/Not Resolved]
  - Hypokalaemia [Not Recovered/Not Resolved]
  - Hypocalcaemia [Not Recovered/Not Resolved]
  - Lymphocyte count decreased [Not Recovered/Not Resolved]
  - White blood cell count decreased [Not Recovered/Not Resolved]
  - Anaemia [Not Recovered/Not Resolved]
  - Glomerular filtration rate decreased [Not Recovered/Not Resolved]
  - Hypercholesterolaemia [Recovered/Resolved]
  - Hyperuricaemia [Not Recovered/Not Resolved]
  - Blood lactate dehydrogenase increased [Recovered/Resolved]
  - Hyperlipidaemia [Not Recovered/Not Resolved]
  - Hypomagnesaemia [Recovered/Resolved]
  - Beta 2 microglobulin increased [Not Recovered/Not Resolved]
  - Neutrophil count decreased [Recovered/Resolved]
  - Off label use [Recovered/Resolved]

NARRATIVE: CASE EVENT DATE: 20220322
